FAERS Safety Report 4782843-8 (Version None)
Quarter: 2005Q3

REPORT INFORMATION
  Report Type: 
  Country: None (occurrence: None)
  Receive Date: 20050929
  Receipt Date: 20050929
  Transmission Date: 20060218
  Serious: No
  Sender: FDA-Public Use
  Company Number: None

PATIENT
  Sex: Female
  Weight: 67.586 kg

DRUGS (13)
  1. AMPICILLIN [Suspect]
     Indication: ENDOCARDITIS
     Dosage: 2 GM IV Q 6 H
     Route: 042
     Dates: start: 20030211
  2. GENTAMICIN [Suspect]
     Indication: ENDOCARDITIS
     Dosage: 250 MG IV Q 24 H
     Route: 042
     Dates: start: 20030211
  3. DURAGESIC-100 [Concomitant]
  4. LANOXIN [Concomitant]
  5. PROTONIX [Concomitant]
  6. TORSEMIDE [Concomitant]
  7. GLIPIZIDE [Concomitant]
  8. LEVONYL [Concomitant]
  9. COUMADIN [Concomitant]
  10. CYCLOBENZAPRINE HCL [Concomitant]
  11. ZOCOR [Concomitant]
  12. VICODIN [Concomitant]
  13. PAXIL [Concomitant]

REACTIONS (4)
  - BRUXISM [None]
  - DYSKINESIA [None]
  - INFUSION RELATED REACTION [None]
  - REFUSAL OF TREATMENT BY PATIENT [None]
